FAERS Safety Report 13621266 (Version 4)
Quarter: 2017Q3

REPORT INFORMATION
  Report Type: Spontaneous
  Country: US (occurrence: US)
  Receive Date: 20170607
  Receipt Date: 20170720
  Transmission Date: 20171127
  Serious: No
  Sender: FDA-Public Use
  Company Number: US-PFIZER INC-2017231927

PATIENT
  Age: 70 Year
  Sex: Male

DRUGS (6)
  1. ROZEREM [Concomitant]
     Active Substance: RAMELTEON
     Dosage: UNK
  2. METOPROLOL. [Concomitant]
     Active Substance: METOPROLOL
     Dosage: UNK
  3. GLIPIZIDE. [Concomitant]
     Active Substance: GLIPIZIDE
     Dosage: UNK
  4. MARINOL [Concomitant]
     Active Substance: DRONABINOL
     Dosage: UNK
  5. SUTENT [Suspect]
     Active Substance: SUNITINIB MALATE
     Indication: MALIGNANT NEOPLASM OF THYMUS
     Dosage: 50 MG, CYCLIC (DAILY FOR 2 WEEKS ON AND 1 WEEK OFF)
     Dates: start: 20170531, end: 2017
  6. AUGMENTIN [Concomitant]
     Active Substance: AMOXICILLIN\CLAVULANATE POTASSIUM
     Dosage: UNK

REACTIONS (15)
  - Hypersomnia [Unknown]
  - Fatigue [Unknown]
  - Product use in unapproved indication [Unknown]
  - Decreased appetite [Unknown]
  - Dyspnoea [Unknown]
  - Skin discolouration [Unknown]
  - Irritability [Unknown]
  - Contusion [Unknown]
  - Joint swelling [Not Recovered/Not Resolved]
  - Peripheral swelling [Not Recovered/Not Resolved]
  - Insomnia [Unknown]
  - Blister [Unknown]
  - Erythema [Unknown]
  - Suffocation feeling [Unknown]
  - Malaise [Unknown]

NARRATIVE: CASE EVENT DATE: 2017
